FAERS Safety Report 15541328 (Version 1)
Quarter: 2018Q4

REPORT INFORMATION
  Report Type: Spontaneous
  Country: US (occurrence: US)
  Receive Date: 20181017
  Receipt Date: 20181017
  Transmission Date: 20190205
  Serious: No
  Sender: FDA-Public Use
  Company Number: None

PATIENT
  Age: 52 Year
  Sex: Female

DRUGS (1)
  1. STELARA [Suspect]
     Active Substance: USTEKINUMAB
     Dates: start: 20181011

REACTIONS (5)
  - Headache [None]
  - Musculoskeletal pain [None]
  - Fatigue [None]
  - Pruritus [None]
  - Neck pain [None]

NARRATIVE: CASE EVENT DATE: 20181015
